FAERS Safety Report 6734426-8 (Version None)
Quarter: 2010Q2

REPORT INFORMATION
  Report Type: 
  Country: None (occurrence: None)
  Receive Date: 20100520
  Receipt Date: 20100510
  Transmission Date: 20101027
  Serious: Yes (Hospitalization)
  Sender: FDA-Public Use
  Company Number: AU-JNJFOC-20100504092

PATIENT
  Age: 10 Year
  Sex: Female

DRUGS (3)
  1. PALIPERIDONE [Suspect]
     Indication: DRUG USE FOR UNKNOWN INDICATION
     Route: 048
  2. MELATONIN [Concomitant]
     Indication: DRUG USE FOR UNKNOWN INDICATION
  3. QUETIAPINE [Concomitant]
     Indication: DRUG USE FOR UNKNOWN INDICATION

REACTIONS (11)
  - DISORIENTATION [None]
  - DYSARTHRIA [None]
  - DYSPHAGIA [None]
  - HEADACHE [None]
  - HYPERTENSION [None]
  - MASKED FACIES [None]
  - SOMNOLENCE [None]
  - TACHYCARDIA [None]
  - TARDIVE DYSKINESIA [None]
  - TREMOR [None]
  - TRISMUS [None]
